FAERS Safety Report 9916324 (Version 2)
Quarter: 2014Q1

REPORT INFORMATION
  Report Type: Report from Study
  Country: DE (occurrence: DE)
  Receive Date: 20140221
  Receipt Date: 20140221
  Transmission Date: 20141002
  Serious: Yes (Hospitalization, Disabling, Other)
  Sender: FDA-Public Use
  Company Number: PHHY2014DE003261

PATIENT
  Sex: Male

DRUGS (7)
  1. STI571 [Suspect]
     Indication: PULMONARY ARTERIAL HYPERTENSION
     Dosage: 100 MG, UNK
     Route: 048
  2. STI571 [Suspect]
     Indication: OFF LABEL USE
     Dosage: 400 MG, DAILY
     Dates: start: 20121126, end: 20130108
  3. STI571 [Suspect]
     Dosage: 100 MG, DAILY
     Dates: start: 20130108, end: 20140126
  4. STI571 [Suspect]
     Dosage: 400 MG, DAILY
     Dates: start: 20140126
  5. OLMESARTAN [Concomitant]
     Indication: HYPERTENSION
     Dosage: UNK UKN, UNK
  6. OMEPRAZOLE [Concomitant]
     Dosage: 20 MG, DAILY
     Dates: end: 20140108
  7. PANTOPRAZOL [Concomitant]
     Dosage: 20 MG, DAILY
     Dates: start: 20140108

REACTIONS (19)
  - Abdominal pain [Unknown]
  - General physical health deterioration [Unknown]
  - Gallbladder polyp [Unknown]
  - Gallbladder disorder [Unknown]
  - Pain in extremity [Not Recovered/Not Resolved]
  - Throat irritation [Unknown]
  - Decreased immune responsiveness [Unknown]
  - Gastrooesophageal reflux disease [Unknown]
  - Concomitant disease progression [Unknown]
  - Feeling abnormal [Unknown]
  - Vomiting [Unknown]
  - Nausea [Recovering/Resolving]
  - Weight decreased [Unknown]
  - Influenza like illness [Unknown]
  - Fatigue [Unknown]
  - Oropharyngeal pain [Unknown]
  - Cough [Unknown]
  - Nasopharyngitis [Unknown]
  - Arthralgia [Unknown]
